FAERS Safety Report 7693659-7 (Version None)
Quarter: 2011Q3

REPORT INFORMATION
  Report Type: 
  Country: None (occurrence: None)
  Receive Date: 20110819
  Receipt Date: 20110816
  Transmission Date: 20111222
  Serious: Yes (Other)
  Sender: FDA-Public Use
  Company Number: JP-PFIZER INC-2011157656

PATIENT
  Age: 59 Year
  Sex: Female
  Weight: 42 kg

DRUGS (5)
  1. DEPAKENE [Concomitant]
     Indication: EPILEPSY
     Dosage: 200 MG, 3X/DAY
     Route: 048
     Dates: start: 20110228
  2. LYRICA [Suspect]
     Indication: PAIN
  3. LYRICA [Suspect]
     Indication: SCIATICA
     Dosage: 75 MG, 2X/DAY
     Route: 048
     Dates: start: 20110101, end: 20110623
  4. TEGRETOL [Suspect]
     Indication: EPILEPSY
     Dosage: 200 MG, 3X/DAY
     Route: 048
     Dates: start: 20110228, end: 20110512
  5. TEGRETOL [Suspect]
     Dosage: 100 MG, 3X/DAY
     Route: 048
     Dates: start: 20110513, end: 20110621

REACTIONS (3)
  - LOSS OF CONSCIOUSNESS [None]
  - GRAND MAL CONVULSION [None]
  - EPILEPSY [None]
